FAERS Safety Report 8059149-7 (Version None)
Quarter: 2012Q1

REPORT INFORMATION
  Report Type: 
  Country: None (occurrence: None)
  Receive Date: 20120120
  Receipt Date: 20120109
  Transmission Date: 20120608
  Serious: Yes (Hospitalization)
  Sender: FDA-Public Use
  Company Number: FR-NOVOPROD-343019

PATIENT
  Age: 77 Year
  Sex: Male

DRUGS (4)
  1. HUMALOG [Suspect]
     Indication: DIABETES MELLITUS
     Dosage: UNK
     Dates: start: 20111217, end: 20111217
  2. LANTUS [Suspect]
     Indication: DIABETES MELLITUS
     Dosage: UNK
     Dates: start: 20111217, end: 20111226
  3. REPAGLINIDE [Suspect]
     Indication: DIABETES MELLITUS
     Dosage: PO
     Route: 048
     Dates: start: 20111217, end: 20111219
  4. OXAZEPAM [Suspect]
     Indication: DIABETES MELLITUS
     Dosage: UNK
     Dates: start: 20111217

REACTIONS (1)
  - RASH [None]
